FAERS Safety Report 8607282-0 (Version None)
Quarter: 2012Q3

REPORT INFORMATION
  Report Type: 
  Country: None (occurrence: None)
  Receive Date: 20120807
  Receipt Date: 20120727
  Transmission Date: 20120928
  Serious: Yes (Disabling, Other)
  Sender: FDA-Public Use
  Company Number: AUR-APL-2012-02933

PATIENT
  Age: 62 Year
  Sex: Female
  Weight: 65.5 kg

DRUGS (5)
  1. CITALOPRAM HYDROBROMIDE [Suspect]
     Indication: DEPRESSION
     Dosage: (20 MG),ORAL
     Route: 048
     Dates: start: 20090411
  2. GLUCOSAMINE WITH CHONDROITIN (GLUCOSAMINE W/CHONDROITIN COMPLEX) [Concomitant]
  3. ACETAMINOPHEN [Concomitant]
  4. DICLOFENAC SODIUM [Concomitant]
  5. ZOPICLONE (ZOPICLONE) [Concomitant]

REACTIONS (3)
  - ONYCHOCLASIS [None]
  - AMNESIA [None]
  - NAIL GROWTH ABNORMAL [None]
